FAERS Safety Report 6338560-6 (Version None)
Quarter: 2009Q3

REPORT INFORMATION
  Report Type: 
  Country: None (occurrence: None)
  Receive Date: 20090901
  Receipt Date: 20090818
  Transmission Date: 20100115
  Serious: Yes (Life-Threatening)
  Sender: FDA-Public Use
  Company Number: TCI2009A02208

PATIENT
  Age: 80 Year
  Sex: Female

DRUGS (5)
  1. CERCINE INJECTION (DIAZEPAM) [Suspect]
     Indication: SEDATIVE THERAPY
     Dosage: 8 MG (8 MG,1 IN 1 D), INTRAVENOUS
     Route: 042
     Dates: start: 20090527, end: 20090527
  2. OPYSTAN (PETHIDINE HYDROCHLORIDE) [Suspect]
     Indication: SEDATIVE THERAPY
     Dosage: 50 MG (50 MG, 1 IN 1 D), INTRAVENOUS
     Route: 042
     Dates: start: 20090527, end: 20090527
  3. DEZOLAM (ETIZOLAM) [Suspect]
     Dosage: 0.5 MG (0.5 MG,1 IN 1 D), PER ORAL
     Route: 048
  4. TAKEPRON 0D (LANSOPRAZOLE) [Concomitant]
  5. PRAVASTATIN SODIUM [Concomitant]

REACTIONS (3)
  - DEPRESSED LEVEL OF CONSCIOUSNESS [None]
  - HYPOPNOEA [None]
  - THERAPEUTIC RESPONSE PROLONGED [None]
